FAERS Safety Report 20186281 (Version 1)
Quarter: 2021Q4

REPORT INFORMATION
  Report Type: Spontaneous
  Country: US (occurrence: US)
  Receive Date: 20211215
  Receipt Date: 20211215
  Transmission Date: 20220303
  Serious: No
  Sender: FDA-Public Use
  Company Number: US-GLENMARK PHARMACEUTICALS-2021GMK068560

PATIENT

DRUGS (5)
  1. DESONIDE [Suspect]
     Active Substance: DESONIDE
     Indication: Rash
     Dosage: UNK (2 TO 4 TIMES DAILY)
     Route: 061
  2. ALOE VERA LEAF [Concomitant]
     Active Substance: ALOE VERA LEAF
     Indication: Skin disorder
     Dosage: UNK
     Route: 061
  3. LISINOPRIL [Concomitant]
     Active Substance: LISINOPRIL
     Indication: Hypertension
     Dosage: 40 MILLIGRAM, QD
     Route: 048
  4. AMLODIPINE [Concomitant]
     Active Substance: AMLODIPINE BESYLATE
     Indication: Hypertension
     Dosage: 10 MILLIGRAM, QD
     Route: 048
  5. VITAMINS NOS [Concomitant]
     Active Substance: VITAMINS
     Indication: Immunisation
     Dosage: UNK UNK, QD
     Route: 048

REACTIONS (3)
  - Drug effective for unapproved indication [Unknown]
  - Intentional product use issue [Unknown]
  - Incorrect product administration duration [Unknown]
